FAERS Safety Report 7204507-3 (Version None)
Quarter: 2010Q4

REPORT INFORMATION
  Report Type: 
  Country: None (occurrence: None)
  Receive Date: 20101230
  Receipt Date: 20101224
  Transmission Date: 20110411
  Serious: No
  Sender: FDA-Public Use
  Company Number: US-PFIZER INC-2010179527

PATIENT
  Sex: Female

DRUGS (1)
  1. PREMARIN [Suspect]
     Route: 067
     Dates: start: 20101215

REACTIONS (2)
  - FUNGAL INFECTION [None]
  - VULVOVAGINAL PRURITUS [None]
